FAERS Safety Report 14572170 (Version 1)
Quarter: 2018Q1

REPORT INFORMATION
  Report Type: Spontaneous
  Country: GB (occurrence: GB)
  Receive Date: 20180226
  Receipt Date: 20180226
  Transmission Date: 20180509
  Serious: Yes (Other)
  Sender: FDA-Public Use
  Company Number: GB-AMGEN-GBRSP2018024226

PATIENT
  Age: 66 Year
  Sex: Male
  Weight: 97.3 kg

DRUGS (5)
  1. XARELTO [Concomitant]
     Active Substance: RIVAROXABAN
     Dosage: 20 MG, UNK
     Route: 048
  2. REPATHA [Suspect]
     Active Substance: EVOLOCUMAB
     Indication: HYPERLIPIDAEMIA
     Dosage: 140 MG, UNK
     Route: 058
     Dates: start: 20170607, end: 20171001
  3. ALLOPURINOL. [Concomitant]
     Active Substance: ALLOPURINOL
     Dosage: 300 MG, UNK
     Route: 048
  4. LISINOPRIL. [Concomitant]
     Active Substance: LISINOPRIL
     Dosage: 5 MG, UNK
     Route: 048
  5. RAMIPRIL. [Concomitant]
     Active Substance: RAMIPRIL
     Dosage: 5 MG, UNK
     Route: 048

REACTIONS (2)
  - Joint stiffness [Recovered/Resolved]
  - Arthralgia [Recovered/Resolved]

NARRATIVE: CASE EVENT DATE: 20170815
